FAERS Safety Report 8595923-6 (Version None)
Quarter: 2012Q3

REPORT INFORMATION
  Report Type: 
  Country: None (occurrence: None)
  Receive Date: 20120815
  Receipt Date: 19901001
  Transmission Date: 20120928
  Serious: Yes (Other)
  Sender: FDA-Public Use
  Company Number: US-ROCHE-1100446

PATIENT
  Age: 47 Year
  Sex: Male

DRUGS (7)
  1. ASPIRIN [Concomitant]
     Route: 048
  2. EPHEDRINE SULFATE [Concomitant]
     Route: 042
  3. ACTIVASE [Suspect]
     Dosage: 50 CC FOR FIRST HOUR
     Route: 041
  4. ATROPINE [Concomitant]
  5. ACTIVASE [Suspect]
     Dosage: 30 CC
     Route: 041
  6. ACTIVASE [Suspect]
     Indication: ACUTE MYOCARDIAL INFARCTION
     Route: 040
  7. LIDOCAINE [Concomitant]
     Route: 042

REACTIONS (3)
  - CHEST DISCOMFORT [None]
  - DYSPNOEA EXERTIONAL [None]
  - PAIN [None]
